FAERS Safety Report 16705354 (Version 2)
Quarter: 2019Q4

REPORT INFORMATION
  Report Type: Spontaneous
  Country: JP (occurrence: JP)
  Receive Date: 20190815
  Receipt Date: 20191111
  Transmission Date: 20200122
  Serious: Yes (Hospitalization)
  Sender: FDA-Public Use
  Company Number: JP-ACTELION-A-CH2019-194154

PATIENT
  Age: 70 Year
  Sex: Female

DRUGS (3)
  1. TRACLEER [Suspect]
     Active Substance: BOSENTAN
     Indication: SCLERODERMA ASSOCIATED DIGITAL ULCER
     Dosage: 62.5 MG, BID
     Route: 048
     Dates: start: 20180724, end: 20180925
  2. WARFARIN [Concomitant]
     Active Substance: WARFARIN
     Dosage: UNK
     Dates: end: 20180928
  3. TRACLEER [Suspect]
     Active Substance: BOSENTAN
     Dosage: 125 MG, BID
     Route: 048
     Dates: start: 20180926, end: 20180928

REACTIONS (9)
  - Respiratory failure [Recovered/Resolved]
  - Venous operation [Unknown]
  - Arterial bypass occlusion [Unknown]
  - Infection [Recovered/Resolved]
  - Pulmonary vein occlusion [Recovered/Resolved]
  - Gangrene [Recovered/Resolved]
  - Condition aggravated [Unknown]
  - Peripheral artery bypass [Unknown]
  - Gastrointestinal haemorrhage [Recovered/Resolved]

NARRATIVE: CASE EVENT DATE: 201809
